FAERS Safety Report 9312052 (Version 1)
Quarter: 2013Q2

REPORT INFORMATION
  Report Type: Spontaneous
  Country: US (occurrence: US)
  Receive Date: 20130528
  Receipt Date: 20130528
  Transmission Date: 20140414
  Serious: No
  Sender: FDA-Public Use
  Company Number: US-009507513-1305USA013193

PATIENT
  Age: 66 Year
  Sex: Female

DRUGS (12)
  1. TEMODAR [Suspect]
     Indication: BRAIN NEOPLASM
     Dosage: 250 MG AND TWO 5 MG CAPSULES IN THE EVENING 5 DAYS OUT OF EVERY 28 DAYS (TOTAL DOSE 260 MG)
     Route: 048
     Dates: start: 201204
  2. TEMODAR [Suspect]
     Dosage: 250 MG AND TWO 5 MG CAPSULES IN THE EVENING 5 DAYS OUT OF EVERY 28 DAYS (TOTAL DOSE 260 MG)
     Route: 048
     Dates: start: 201204
  3. LORAZEPAM [Concomitant]
  4. ONDANSETRON [Concomitant]
  5. BUPROPION HYDROCHLORIDE [Concomitant]
  6. COREG [Concomitant]
  7. GABAPENTIN [Concomitant]
  8. VICODIN [Concomitant]
  9. KEPPRA [Concomitant]
  10. PRILOSEC [Concomitant]
  11. COMPAZINE [Concomitant]
  12. ZOLPIDEM TARTRATE [Concomitant]

REACTIONS (11)
  - Retching [Not Recovered/Not Resolved]
  - Product odour abnormal [Unknown]
  - Urine odour abnormal [Not Recovered/Not Resolved]
  - Product blister packaging issue [Unknown]
  - Feeling abnormal [Not Recovered/Not Resolved]
  - Adverse event [Not Recovered/Not Resolved]
  - Headache [Not Recovered/Not Resolved]
  - Fatigue [Not Recovered/Not Resolved]
  - Nausea [Not Recovered/Not Resolved]
  - Myalgia [Not Recovered/Not Resolved]
  - Arthralgia [Not Recovered/Not Resolved]
